FAERS Safety Report 14603708 (Version 1)
Quarter: 2018Q1

REPORT INFORMATION
  Report Type: Spontaneous
  Country: US (occurrence: US)
  Receive Date: 20180306
  Receipt Date: 20180306
  Transmission Date: 20180509
  Serious: Yes (Hospitalization, Other)
  Sender: FDA-Public Use
  Company Number: US-TARO-2018TAR00163

PATIENT
  Age: 83 Year
  Sex: Male
  Weight: 104.31 kg

DRUGS (3)
  1. CLOBETASOL PROPIONATE CREAM USP 0.05% [Suspect]
     Active Substance: CLOBETASOL PROPIONATE
     Indication: PRURITUS
     Dosage: SMALL AMOUNT TO LEGS, BACK AND ARMS, AS NEEDED
     Route: 061
     Dates: start: 2016, end: 201802
  2. CLOBETASOL PROPIONATE CREAM USP 0.05% [Suspect]
     Active Substance: CLOBETASOL PROPIONATE
     Indication: ECZEMA
  3. TESTOSTERONE. [Concomitant]
     Active Substance: TESTOSTERONE

REACTIONS (10)
  - Skin injury [Unknown]
  - Arthralgia [Recovered/Resolved]
  - Hip arthroplasty [Recovered/Resolved]
  - Alopecia [Not Recovered/Not Resolved]
  - Arthropathy [Unknown]
  - Dyspnoea [Unknown]
  - Cardiac failure [Recovered/Resolved]
  - Hypohidrosis [Not Recovered/Not Resolved]
  - Arthritis [Recovered/Resolved]
  - Impaired healing [Unknown]

NARRATIVE: CASE EVENT DATE: 2017
